FAERS Safety Report 7595569-2 (Version None)
Quarter: 2011Q3

REPORT INFORMATION
  Report Type: 
  Country: None (occurrence: None)
  Receive Date: 20110707
  Receipt Date: 20110629
  Transmission Date: 20111222
  Serious: Yes (Other)
  Sender: FDA-Public Use
  Company Number: US-GLAXOSMITHKLINE-A0930811A

PATIENT
  Age: 36 Year
  Sex: Male
  Weight: 84.1 kg

DRUGS (3)
  1. LOVAZA [Suspect]
     Dosage: 3G PER DAY
     Route: 065
  2. FENOFIBRATE [Concomitant]
  3. NIASPAN [Suspect]
     Indication: HIGH DENSITY LIPOPROTEIN DECREASED
     Dosage: 1000MG PER DAY
     Route: 065
     Dates: start: 20110101

REACTIONS (1)
  - LIVER FUNCTION TEST ABNORMAL [None]
